FAERS Safety Report 4462553-7 (Version None)
Quarter: 2004Q3

REPORT INFORMATION
  Report Type: 
  Country: None (occurrence: None)
  Receive Date: 20040924
  Receipt Date: 20040913
  Transmission Date: 20050211
  Serious: Yes (Death, Life-Threatening, Hospitalization, Other)
  Sender: FDA-Public Use
  Company Number: 2004046541

PATIENT
  Age: 55 Year
  Sex: Male
  Weight: 86 kg

DRUGS (7)
  1. VFEND [Suspect]
     Indication: CANDIDIASIS
     Dosage: 400 MG (200 MG, 2 IN 1 D), ORAL
     Route: 048
     Dates: start: 20040701, end: 20040704
  2. ITRACONAZOLE [Concomitant]
  3. CYCLOSPORINE [Concomitant]
  4. PIP/TAZO (PIPERACILLIN SODIUM, TAZOBACTAM SODIUM) [Concomitant]
  5. TEICOPLANIN (TEICOPLANIN) [Concomitant]
  6. GANCICLOVIR SODIUM [Concomitant]
  7. VANCOMYCIN [Concomitant]

REACTIONS (12)
  - BLOOD CULTURE POSITIVE [None]
  - BLOOD PH DECREASED [None]
  - BRADYCARDIA [None]
  - CANDIDIASIS [None]
  - CIRCULATORY COLLAPSE [None]
  - CULTURE URINE POSITIVE [None]
  - HEPATIC FAILURE [None]
  - HEPATITIS [None]
  - MULTI-ORGAN FAILURE [None]
  - OXYGEN SATURATION DECREASED [None]
  - PSEUDOMONAS INFECTION [None]
  - SEPSIS [None]
